FAERS Safety Report 7497682-7 (Version None)
Quarter: 2011Q2

REPORT INFORMATION
  Report Type: 
  Country: None (occurrence: None)
  Receive Date: 20110523
  Receipt Date: 20110518
  Transmission Date: 20111010
  Serious: Yes (Other)
  Sender: FDA-Public Use
  Company Number: CH-ROXANE LABORATORIES, INC.-2011-RO-00686RO

PATIENT
  Age: 71 Year
  Sex: Female

DRUGS (3)
  1. TRANYLCYPROMINE SULFATE [Suspect]
     Indication: BIPOLAR DISORDER
     Dosage: 50 MG
  2. LITHIUM CARBONATE [Suspect]
     Indication: BIPOLAR DISORDER
  3. LEVOTHYROXINE SODIUM [Suspect]
     Indication: THYROID DISORDER
     Dosage: 0.1 MG

REACTIONS (3)
  - ENCEPHALOPATHY [None]
  - HYPERTENSION [None]
  - NEUROTOXICITY [None]
